FAERS Safety Report 12694946 (Version 5)
Quarter: 2016Q4

REPORT INFORMATION
  Report Type: Spontaneous
  Country: EE (occurrence: EE)
  Receive Date: 20160829
  Receipt Date: 20161019
  Transmission Date: 20170207
  Serious: Yes (Other)
  Sender: FDA-Public Use
  Company Number: PHHY2016EE117202

PATIENT
  Age: 52 Year
  Sex: Female
  Weight: 120 kg

DRUGS (2)
  1. PERINDOPRIL [Concomitant]
     Active Substance: PERINDOPRIL
     Indication: PRODUCT USED FOR UNKNOWN INDICATION
     Route: 065
  2. GILENYA [Suspect]
     Active Substance: FINGOLIMOD HYDROCHLORIDE
     Indication: MULTIPLE SCLEROSIS
     Dosage: 0.5 MG, QD
     Route: 048
     Dates: start: 20160212, end: 20161009

REACTIONS (1)
  - Invasive ductal breast carcinoma [Recovered/Resolved with Sequelae]

NARRATIVE: CASE EVENT DATE: 20160707
